FAERS Safety Report 13585618 (Version 1)
Quarter: 2017Q2

REPORT INFORMATION
  Report Type: Spontaneous
  Country: US (occurrence: US)
  Receive Date: 20170526
  Receipt Date: 20170526
  Transmission Date: 20170830
  Serious: No
  Sender: FDA-Public Use
  Company Number: US-BAUSCH-BL-2016-020958

PATIENT
  Sex: Female

DRUGS (2)
  1. CUPRIMINE [Suspect]
     Active Substance: PENICILLAMINE
     Indication: PRODUCT USED FOR UNKNOWN INDICATION
     Route: 048
  2. CUPRIMINE [Suspect]
     Active Substance: PENICILLAMINE
     Route: 048

REACTIONS (2)
  - Drug dose omission [Unknown]
  - Abdominal pain upper [Unknown]
